FAERS Safety Report 8357828-5 (Version None)
Quarter: 2012Q2

REPORT INFORMATION
  Report Type: 
  Country: None (occurrence: None)
  Receive Date: 20120514
  Receipt Date: 20110527
  Transmission Date: 20120825
  Serious: Yes (Hospitalization)
  Sender: FDA-Public Use
  Company Number: US-ALEXION-A201100313

PATIENT
  Sex: Female

DRUGS (6)
  1. MELOXICAM [Concomitant]
     Dosage: UNK
     Route: 048
  2. SOLIRIS [Suspect]
     Indication: PAROXYSMAL NOCTURNAL HAEMOGLOBINURIA
     Dosage: 900 MG, Q2W
     Route: 042
     Dates: start: 20110301
  3. AMLODIPINE BESYLATE [Concomitant]
     Dosage: UNK
     Route: 048
  4. HYDROCHLOROTHIAZIDE [Concomitant]
     Dosage: UNK
     Route: 048
  5. LISINOPRIL [Concomitant]
     Dosage: UNK
     Route: 048
  6. METFORMIN HCL [Concomitant]
     Dosage: UNK
     Route: 048

REACTIONS (5)
  - URINARY TRACT INFECTION [None]
  - NEPHROLITHIASIS [None]
  - PLATELET COUNT DECREASED [None]
  - CONDITION AGGRAVATED [None]
  - DYSPNOEA [None]
